FAERS Safety Report 18086280 (Version 1)
Quarter: 2020Q3

REPORT INFORMATION
  Report Type: Spontaneous
  Country: CN (occurrence: CN)
  Receive Date: 20200728
  Receipt Date: 20200728
  Transmission Date: 20201103
  Serious: Yes (Other)
  Sender: FDA-Public Use
  Company Number: CN-BAXTER-2020BAX015093

PATIENT
  Age: 66 Year
  Sex: Male
  Weight: 59.7 kg

DRUGS (2)
  1. METRONIDAZOLE AND SODIUM CHLORIDE INJECTION [Suspect]
     Active Substance: METRONIDAZOLE\SODIUM CHLORIDE
     Indication: APPENDICITIS
     Route: 041
     Dates: start: 20200628, end: 20200702
  2. BAIFULE [MOXIFLOXACIN HYDROCHLORIDE] [Suspect]
     Active Substance: MOXIFLOXACIN HYDROCHLORIDE
     Indication: APPENDICITIS
     Route: 041
     Dates: start: 20200628, end: 20200702

REACTIONS (4)
  - Procedural pain [Unknown]
  - Defaecation disorder [Unknown]
  - Abdominal pain [Unknown]
  - Delirium [Recovering/Resolving]

NARRATIVE: CASE EVENT DATE: 20200630
